FAERS Safety Report 13035127 (Version 2)
Quarter: 2017Q1

REPORT INFORMATION
  Report Type: Report from Study
  Country: US (occurrence: US)
  Receive Date: 20161216
  Receipt Date: 20170217
  Transmission Date: 20170428
  Serious: Yes (Hospitalization)
  Sender: FDA-Public Use
  Company Number: US-PFIZER INC-2016568841

PATIENT
  Sex: Male
  Weight: 125 kg

DRUGS (9)
  1. CARBOPLATIN. [Suspect]
     Active Substance: CARBOPLATIN
     Indication: SQUAMOUS CELL CARCINOMA OF THE ORAL CAVITY
     Dosage: AUC 6 EVERY 21 DAYS
     Route: 042
     Dates: start: 20160811
  2. BLINDED THERAPY [Suspect]
     Active Substance: INVESTIGATIONAL PRODUCT
     Dosage: TABLET, ONCE DAILY
     Route: 048
  3. BLINDED THERAPY [Suspect]
     Active Substance: INVESTIGATIONAL PRODUCT
     Indication: SQUAMOUS CELL CARCINOMA OF THE ORAL CAVITY
     Dosage: TABLET, 150 MG, ONCE DAILY
     Route: 048
     Dates: start: 20160812
  4. ZOFRAN [Concomitant]
     Active Substance: ONDANSETRON HYDROCHLORIDE
     Dosage: 8 MG, UNK
  5. SENOKOT-S [Concomitant]
     Active Substance: DOCUSATE SODIUM\SENNOSIDES
  6. DURAGESIC [Concomitant]
     Active Substance: FENTANYL
  7. DOCETAXEL. [Suspect]
     Active Substance: DOCETAXEL
     Indication: SQUAMOUS CELL CARCINOMA OF THE ORAL CAVITY
     Dosage: 75 MG/M2, EVERY 21 DAYS
     Route: 042
     Dates: start: 20160811
  8. DECADRON [Concomitant]
     Active Substance: DEXAMETHASONE
     Dosage: 4 MG, UNK
  9. HYCET [Concomitant]
     Active Substance: ACETAMINOPHEN\HYDROCODONE BITARTRATE

REACTIONS (1)
  - Sinus bradycardia [Recovered/Resolved]

NARRATIVE: CASE EVENT DATE: 20160816
